FAERS Safety Report 15226918 (Version 1)
Quarter: 2018Q3

REPORT INFORMATION
  Report Type: Spontaneous
  Country: US (occurrence: US)
  Receive Date: 20180801
  Receipt Date: 20180801
  Transmission Date: 20181010
  Serious: No
  Sender: FDA-Public Use
  Company Number: US-BAUSCH-BL-2018-017621

PATIENT
  Age: 81 Year
  Sex: Female

DRUGS (2)
  1. IPRATROPIUM BROMIDE NASAL SOLUTION 0.03% [Suspect]
     Active Substance: IPRATROPIUM BROMIDE
     Dosage: ONE SPRAY IN EACH NOSTRIL TWICE DAILY.
     Route: 045
     Dates: start: 2018
  2. IPRATROPIUM BROMIDE NASAL SOLUTION 0.03% [Suspect]
     Active Substance: IPRATROPIUM BROMIDE
     Indication: RHINORRHOEA
     Dosage: ONE SPRAY IN EACH NOSTRIL TWICE DAILY
     Route: 045
     Dates: start: 2018

REACTIONS (4)
  - Nasal discomfort [Unknown]
  - Physical product label issue [Recovered/Resolved]
  - Rhinorrhoea [Unknown]
  - Dysgeusia [Unknown]

NARRATIVE: CASE EVENT DATE: 20180526
